FAERS Safety Report 9655906 (Version 1)
Quarter: 2013Q4

REPORT INFORMATION
  Report Type: Spontaneous
  Country: BR (occurrence: BR)
  Receive Date: 20131030
  Receipt Date: 20131030
  Transmission Date: 20140711
  Serious: Yes (Other)
  Sender: FDA-Public Use
  Company Number: BR-BRISTOL-MYERS SQUIBB COMPANY-19648732

PATIENT
  Age: 47 Year
  Sex: Male

DRUGS (2)
  1. SPRYCEL [Suspect]
     Indication: CHRONIC MYELOID LEUKAEMIA
     Route: 048
  2. PREDNISOLONE [Suspect]
     Dosage: SUSPENDED ON OCT12

REACTIONS (4)
  - Pleural effusion [Unknown]
  - Pulmonary hypertension [Unknown]
  - Gastric ulcer [Unknown]
  - Graft versus host disease [Unknown]
